FAERS Safety Report 9617833 (Version 2)
Quarter: 2013Q4

REPORT INFORMATION
  Report Type: Report from Study
  Country: JP (occurrence: JP)
  Receive Date: 20131011
  Receipt Date: 20131011
  Transmission Date: 20140711
  Serious: Yes (Hospitalization, Other)
  Sender: FDA-Public Use
  Company Number: JP-BRISTOL-MYERS SQUIBB COMPANY-17309071

PATIENT
  Age: 27 Year
  Sex: Female

DRUGS (7)
  1. SPRYCEL [Suspect]
     Indication: ACUTE LYMPHOCYTIC LEUKAEMIA
     Dosage: 30JUN-15JUL;28AG-27SP;3OC-27OC09(140MG)?22JUL-24AU09(100-140MG)?4JAN10-9FB10;12MY10-4AP11(100MG)
     Route: 048
     Dates: start: 20090630, end: 20100209
  2. VEPESID INJ [Suspect]
     Indication: ACUTE LYMPHOCYTIC LEUKAEMIA
     Dosage: INJ
     Route: 041
     Dates: start: 20091031, end: 20091101
  3. ENDOXAN [Suspect]
     Indication: ACUTE LYMPHOCYTIC LEUKAEMIA
     Route: 041
     Dates: start: 20091102, end: 20091103
  4. UROMITEXAN [Concomitant]
     Indication: PROPHYLAXIS
     Route: 042
     Dates: start: 20091102, end: 20091103
  5. SANDIMMUN [Concomitant]
     Indication: PROPHYLAXIS
     Route: 042
     Dates: start: 20091104, end: 20091230
  6. NEORAL [Concomitant]
     Indication: PROPHYLAXIS
     Route: 048
     Dates: start: 20100101, end: 20101004
  7. GRAN [Concomitant]
     Route: 058
     Dates: start: 20091104, end: 20091121

REACTIONS (4)
  - Cardiac failure [Recovered/Resolved with Sequelae]
  - White blood cell count decreased [Recovered/Resolved]
  - Neutrophil count decreased [Recovered/Resolved]
  - Pyrexia [Recovered/Resolved]
